FAERS Safety Report 13341564 (Version 1)
Quarter: 2017Q1

REPORT INFORMATION
  Report Type: Spontaneous
  Country: US (occurrence: US)
  Receive Date: 20170316
  Receipt Date: 20170316
  Transmission Date: 20170428
  Serious: No
  Sender: FDA-Public Use
  Company Number: US-ROCHE-1722577

PATIENT
  Sex: Male

DRUGS (22)
  1. LIPITOR [Concomitant]
     Active Substance: ATORVASTATIN CALCIUM
  2. TRAMADOL. [Concomitant]
     Active Substance: TRAMADOL
  3. METOPROLOL. [Concomitant]
     Active Substance: METOPROLOL
  4. ATORVASTATIN [Concomitant]
     Active Substance: ATORVASTATIN
  5. PATADAY [Concomitant]
     Active Substance: OLOPATADINE HYDROCHLORIDE
  6. TOBRADEX [Concomitant]
     Active Substance: DEXAMETHASONE\TOBRAMYCIN
  7. ZOLPIDEM [Concomitant]
     Active Substance: ZOLPIDEM\ZOLPIDEM TARTRATE
  8. PEPCID [Concomitant]
     Active Substance: FAMOTIDINE
  9. AMOXICILLIN. [Concomitant]
     Active Substance: AMOXICILLIN
  10. FAMOTIDINE. [Concomitant]
     Active Substance: FAMOTIDINE
  11. MONTELUKAST [Concomitant]
     Active Substance: MONTELUKAST SODIUM
  12. DRONABINOL. [Concomitant]
     Active Substance: DRONABINOL
  13. ERIVEDGE [Suspect]
     Active Substance: VISMODEGIB
     Indication: BASAL CELL CARCINOMA
     Route: 048
     Dates: start: 20150505
  14. AZITHROMYCIN ANHYDROUS. [Concomitant]
     Active Substance: AZITHROMYCIN ANHYDROUS
  15. HYDROCODONE BITARTRATE AND ACETAMINOPHEN [Concomitant]
     Active Substance: ACETAMINOPHEN\HYDROCODONE BITARTRATE
  16. MEGESTROL [Concomitant]
     Active Substance: MEGESTROL
  17. MIRTAZAPINE. [Concomitant]
     Active Substance: MIRTAZAPINE
  18. HYDROMORPHONE [Concomitant]
     Active Substance: HYDROMORPHONE
  19. KETOROLAC [Concomitant]
     Active Substance: KETOROLAC\KETOROLAC TROMETHAMINE
  20. SSD [Concomitant]
     Active Substance: SILVER SULFADIAZINE
  21. SINGULAIR [Concomitant]
     Active Substance: MONTELUKAST SODIUM
  22. CYCLOBENZAPRINE [Concomitant]
     Active Substance: CYCLOBENZAPRINE

REACTIONS (4)
  - Dysgeusia [Unknown]
  - Ageusia [Unknown]
  - Weight decreased [Unknown]
  - Muscle spasms [Unknown]
